FAERS Safety Report 16196716 (Version 1)
Quarter: 2019Q2

REPORT INFORMATION
  Report Type: Spontaneous
  Country: US (occurrence: US)
  Receive Date: 20190415
  Receipt Date: 20190415
  Transmission Date: 20190711
  Serious: Yes (Other)
  Sender: FDA-Public Use
  Company Number: US-TORRENT-00007972

PATIENT
  Sex: Male

DRUGS (1)
  1. LOSARTAN AND HYDROCHLOROTHIAZIDE [Suspect]
     Active Substance: HYDROCHLOROTHIAZIDE\LOSARTAN POTASSIUM
     Indication: HYPERTENSION
     Dosage: 50 MG/12.5 MG?LOTS OF YEARS
     Route: 048

REACTIONS (2)
  - Tinnitus [Recovered/Resolved]
  - Nasopharyngeal cancer stage II [Not Recovered/Not Resolved]

NARRATIVE: CASE EVENT DATE: 20181201
